FAERS Safety Report 23665952 (Version 3)
Quarter: 2024Q3

REPORT INFORMATION
  Report Type: Spontaneous
  Country: US (occurrence: US)
  Receive Date: 20240323
  Receipt Date: 20240701
  Transmission Date: 20241016
  Serious: No
  Sender: NOVARTIS
  Company Number: US-002147023-NVSC2024US062626

PATIENT
  Sex: Male

DRUGS (1)
  1. COSENTYX [Suspect]
     Active Substance: SECUKINUMAB
     Indication: Product used for unknown indication
     Dosage: 300 MG, QMO (ROUTE: ABDOMEN)
     Route: 065

REACTIONS (4)
  - Skin lesion [Unknown]
  - Needle issue [Unknown]
  - Accidental exposure to product [Unknown]
  - Product dose omission issue [Unknown]
